FAERS Safety Report 9642202 (Version 1)
Quarter: 2013Q4

REPORT INFORMATION
  Report Type: Spontaneous
  Country: US (occurrence: US)
  Receive Date: 20131024
  Receipt Date: 20131024
  Transmission Date: 20140711
  Serious: Yes (Death)
  Sender: FDA-Public Use
  Company Number: US-ROCHE-1293528

PATIENT
  Age: 86 Year
  Sex: Male

DRUGS (1)
  1. XELODA [Suspect]
     Indication: COLON CANCER
     Dosage: 2 WEEKS ON AND 1 WEEK OFF
     Route: 048
     Dates: end: 20131008

REACTIONS (1)
  - Death [Fatal]
